FAERS Safety Report 17252333 (Version 2)
Quarter: 2020Q1

REPORT INFORMATION
  Report Type: Spontaneous
  Country: NL (occurrence: NL)
  Receive Date: 20200109
  Receipt Date: 20200312
  Transmission Date: 20200409
  Serious: Yes (Other)
  Sender: FDA-Public Use
  Company Number: PHHY2019NL185302

PATIENT
  Age: 86 Year
  Sex: Male

DRUGS (10)
  1. GOSERELINE [Concomitant]
     Active Substance: GOSERELIN
     Indication: PRODUCT USED FOR UNKNOWN INDICATION
     Dosage: 10.8 MILLIGRAM, 1X PER 3M 1INJECTION
     Route: 065
  2. XGEVA [Suspect]
     Active Substance: DENOSUMAB
     Indication: PROPHYLAXIS
     Dosage: 120 MILLIGRAM/1.7 ML, Q2WK
     Route: 065
     Dates: start: 20190429
  3. VENLAFAXINE [Suspect]
     Active Substance: VENLAFAXINE HYDROCHLORIDE
     Indication: PRODUCT USED FOR UNKNOWN INDICATION
     Dosage: 37.5 MG, QD
     Route: 065
  4. OXAZEPAM. [Concomitant]
     Active Substance: OXAZEPAM
     Indication: PRODUCT USED FOR UNKNOWN INDICATION
     Dosage: 10 MILLIGRAM, 3D0,5T WHEN NEEDED
     Route: 065
  5. FENTANYL. [Concomitant]
     Active Substance: FENTANYL
     Indication: PRODUCT USED FOR UNKNOWN INDICATION
     Dosage: 12 UG/HR, 1X PER 3D
     Route: 065
  6. CALCIUM [Suspect]
     Active Substance: CALCIUM
     Indication: PRODUCT USED FOR UNKNOWN INDICATION
     Dosage: UNK
     Route: 065
  7. XGEVA [Suspect]
     Active Substance: DENOSUMAB
     Dosage: 120 MILLIGRAM/1.7 ML, Q2WK
     Route: 065
  8. MACROGOL [Concomitant]
     Active Substance: POLYETHYLENE GLYCOLS
     Indication: PRODUCT USED FOR UNKNOWN INDICATION
     Dosage: UNK, 1D1Z
     Route: 065
  9. OXYCODON [Concomitant]
     Active Substance: OXYCODONE
     Indication: PRODUCT USED FOR UNKNOWN INDICATION
     Dosage: 5 MILLIGRAM, BID WHEN NEEDED
     Route: 065
  10. CALCIUM CARBONATE. [Concomitant]
     Active Substance: CALCIUM CARBONATE
     Indication: PRODUCT USED FOR UNKNOWN INDICATION
     Dosage: 1000 MG, QD (2,5G/880IE (1000MG CA)
     Route: 065

REACTIONS (3)
  - Cancer pain [Unknown]
  - Depressed mood [Unknown]
  - Nausea [Not Recovered/Not Resolved]
